FAERS Safety Report 18709278 (Version 2)
Quarter: 2021Q1

REPORT INFORMATION
  Report Type: Spontaneous
  Country: US (occurrence: US)
  Receive Date: 20210106
  Receipt Date: 20210308
  Transmission Date: 20210419
  Serious: Yes (Other)
  Sender: FDA-Public Use
  Company Number: US-GLAXOSMITHKLINE-US2021GSK001136

PATIENT
  Sex: Female

DRUGS (12)
  1. RANITIDINE CAPSULE [Suspect]
     Active Substance: RANITIDINE
     Indication: AUTOIMMUNE THYROIDITIS
     Dosage: 150 MG, QD
     Route: 065
     Dates: start: 200401, end: 201801
  2. ZANTAC [Suspect]
     Active Substance: RANITIDINE HYDROCHLORIDE
     Indication: AUTOIMMUNE THYROIDITIS
     Dosage: 300 MG, QD
     Route: 065
     Dates: start: 199501, end: 201801
  3. RANITIDINE. [Suspect]
     Active Substance: RANITIDINE
     Indication: AUTOIMMUNE THYROIDITIS
     Dosage: 150 MG, QD
     Route: 065
     Dates: start: 200401, end: 201801
  4. ZANTAC [Suspect]
     Active Substance: RANITIDINE HYDROCHLORIDE
     Indication: PROPHYLAXIS
  5. ZANTAC [Suspect]
     Active Substance: RANITIDINE HYDROCHLORIDE
     Indication: PROPHYLAXIS
  6. RANITIDINE. [Suspect]
     Active Substance: RANITIDINE
     Indication: AUTOIMMUNE THYROIDITIS
     Dosage: 150 MG, QD
     Route: 065
     Dates: start: 200401, end: 201801
  7. RANITIDINE. [Suspect]
     Active Substance: RANITIDINE
     Indication: PROPHYLAXIS
  8. RANITIDINE. [Suspect]
     Active Substance: RANITIDINE
     Indication: PROPHYLAXIS
  9. ZANTAC [Suspect]
     Active Substance: RANITIDINE HYDROCHLORIDE
     Indication: AUTOIMMUNE THYROIDITIS
     Dosage: UNK UNK, QD
     Route: 065
     Dates: start: 199501, end: 201801
  10. RANITIDINE CAPSULE [Suspect]
     Active Substance: RANITIDINE
     Indication: PROPHYLAXIS
  11. RANITIDINE. [Suspect]
     Active Substance: RANITIDINE
     Indication: PROPHYLAXIS
  12. RANITIDINE. [Suspect]
     Active Substance: RANITIDINE
     Indication: AUTOIMMUNE THYROIDITIS
     Dosage: 150 MG, QD
     Route: 065
     Dates: start: 200401, end: 201801

REACTIONS (2)
  - Lung neoplasm malignant [Unknown]
  - Breast cancer [Unknown]
